FAERS Safety Report 10071093 (Version 3)
Quarter: 2014Q2

REPORT INFORMATION
  Report Type: Spontaneous
  Country: US (occurrence: US)
  Receive Date: 20140410
  Receipt Date: 20140616
  Transmission Date: 20141212
  Serious: Yes (Hospitalization)
  Sender: FDA-Public Use
  Company Number: US-JNJFOC-20140404655

PATIENT
  Age: 27 Year
  Sex: Female
  Weight: 104.5 kg

DRUGS (11)
  1. REMICADE [Suspect]
     Indication: RHEUMATOID ARTHRITIS
     Dosage: DOSE: RECEIVED 64 MG ONLY
     Route: 042
     Dates: start: 20140303, end: 20140303
  2. ACETAMINOPHEN [Concomitant]
     Indication: PREMEDICATION
     Route: 065
  3. SOLU MEDROL [Concomitant]
     Indication: PREMEDICATION
     Dosage: SLOW IV PUSH
     Route: 042
     Dates: start: 20140303
  4. DIPHENHYDRAMINE [Concomitant]
     Indication: PREMEDICATION
     Dosage: SLOW IV PUSH
     Route: 042
     Dates: start: 20140303
  5. LYRICA [Concomitant]
     Route: 065
  6. CYMBALTA [Concomitant]
     Route: 065
  7. GABAPENTIN [Concomitant]
     Route: 065
  8. MTX [Concomitant]
     Route: 065
  9. EVOXAC [Concomitant]
     Route: 065
  10. FOLIC ACID [Concomitant]
     Route: 065
  11. LORZONE [Concomitant]
     Route: 065

REACTIONS (6)
  - Dystonia [Not Recovered/Not Resolved]
  - Headache [Recovered/Resolved]
  - Feeling abnormal [Unknown]
  - Medication error [Unknown]
  - Infusion related reaction [Recovered/Resolved]
  - Oropharyngeal pain [Unknown]
